FAERS Safety Report 19658069 (Version 14)
Quarter: 2023Q1

REPORT INFORMATION
  Report Type: Spontaneous
  Country: IN (occurrence: IN)
  Receive Date: 20210804
  Receipt Date: 20230331
  Transmission Date: 20230417
  Serious: Yes (Other)
  Sender: FDA-Public Use
  Company Number: IN-PFIZER INC-2021622723

PATIENT
  Age: 68 Year
  Sex: Female

DRUGS (5)
  1. PALBOCICLIB [Suspect]
     Active Substance: PALBOCICLIB
     Indication: Breast cancer metastatic
     Dosage: 125 MG, 1X/DAY
     Route: 048
     Dates: start: 20210412, end: 20210709
  2. PALBOCICLIB [Suspect]
     Active Substance: PALBOCICLIB
     Dosage: 100 MG, 1X/DAY (D1-21 Q28 DAYS FROM 28)
     Route: 048
     Dates: start: 20210709
  3. LETROZOLE [Concomitant]
     Active Substance: LETROZOLE
     Dosage: 2.5 MG, 1X/DAY
  4. CALCIUM CARBONATE\CHOLECALCIFEROL [Concomitant]
     Active Substance: CALCIUM CARBONATE\CHOLECALCIFEROL
     Dosage: UNK, 1X/DAY
  5. ZOLEDRONIC ACID [Concomitant]
     Active Substance: ZOLEDRONIC ACID
     Dosage: 3 MG (3 MG IN 100 ML NS OVER 20 MINS)

REACTIONS (34)
  - Deafness [Unknown]
  - Anaemia [Unknown]
  - Venous thrombosis [Unknown]
  - Creatinine renal clearance increased [Unknown]
  - White blood cell count decreased [Unknown]
  - Neutrophil count decreased [Unknown]
  - Neoplasm progression [Unknown]
  - Product dose omission issue [Unknown]
  - Insomnia [Unknown]
  - Ageusia [Unknown]
  - Decreased appetite [Unknown]
  - Fatigue [Not Recovered/Not Resolved]
  - Pruritus [Recovered/Resolved]
  - Toothache [Unknown]
  - Asthenia [Unknown]
  - Arthralgia [Unknown]
  - Feeding disorder [Unknown]
  - Pain [Unknown]
  - Dizziness [Unknown]
  - Blood pressure increased [Unknown]
  - Platelet count decreased [Unknown]
  - Neutrophil percentage decreased [Unknown]
  - Viral infection [Recovered/Resolved]
  - Basophil percentage increased [Unknown]
  - Lymphocyte percentage increased [Unknown]
  - Monocyte percentage increased [Unknown]
  - Weight decreased [Unknown]
  - Early satiety [Unknown]
  - Creatinine renal clearance decreased [Unknown]
  - Back pain [Unknown]
  - Weight increased [Unknown]
  - Aspartate aminotransferase increased [Unknown]
  - Spinal osteoarthritis [Unknown]
  - Bone lesion [Unknown]

NARRATIVE: CASE EVENT DATE: 20210101
